FAERS Safety Report 23586727 (Version 1)
Quarter: 2024Q1

REPORT INFORMATION
  Report Type: Spontaneous
  Country: US (occurrence: US)
  Receive Date: 20240301
  Receipt Date: 20240301
  Transmission Date: 20240410
  Serious: No
  Sender: FDA-Public Use
  Company Number: US-PFIZER INC-202400054628

PATIENT
  Age: 70 Year
  Sex: Female

DRUGS (1)
  1. IBRANCE [Suspect]
     Active Substance: PALBOCICLIB
     Dosage: 1 TABLET DAILY FOR 21 DAYS ON, THEN 7 DAYS OFF
     Dates: start: 202203

REACTIONS (5)
  - Fibromyalgia [Unknown]
  - Arthritis [Unknown]
  - Pruritus [Unknown]
  - Sinusitis [Unknown]
  - Alopecia [Unknown]
